FAERS Safety Report 7591673-3 (Version None)
Quarter: 2011Q2

REPORT INFORMATION
  Report Type: 
  Country: None (occurrence: None)
  Receive Date: 20110627
  Receipt Date: 20110616
  Transmission Date: 20111010
  Serious: Yes (Other)
  Sender: FDA-Public Use
  Company Number: GB-ACCORD-009595

PATIENT
  Sex: Male

DRUGS (5)
  1. BICALUTAMIDE [Suspect]
     Indication: PROSTATE CANCER
     Dosage: 150.00-MG-1.00 TIMES PER-1.0 DAYS ORAL
     Route: 048
  2. TAMOXIFEN CITRATE [Suspect]
     Indication: PROSTATE CANCER
     Dosage: 20.00-MG-2.00 TIMES PER-1.0 DAYS ORAL
     Route: 048
  3. FYBOGEL (FYBOGEL) [Concomitant]
  4. TEMAZEPAM [Concomitant]
  5. SERTRALINE HYDROCHLORIDE [Concomitant]

REACTIONS (1)
  - OSTEOPOROSIS [None]
